FAERS Safety Report 5003940-8 (Version None)
Quarter: 2006Q2

REPORT INFORMATION
  Report Type: 
  Country: None (occurrence: None)
  Receive Date: 20060515
  Receipt Date: 20060515
  Transmission Date: 20061013
  Serious: No
  Sender: FDA-Public Use
  Company Number: None

PATIENT
  Age: 24 Year
  Sex: Female
  Weight: 81.1939 kg

DRUGS (2)
  1. OXYCONTIN [Suspect]
     Indication: MUSCULAR DYSTROPHY
     Dosage: ONCE PO 12
     Route: 048
  2. OXYCONTIN [Suspect]
     Indication: PAIN
     Dosage: ONCE PO 12
     Route: 048

REACTIONS (5)
  - BACK PAIN [None]
  - DRUG INEFFECTIVE [None]
  - PAIN [None]
  - PAIN IN EXTREMITY [None]
  - THERAPEUTIC RESPONSE UNEXPECTED WITH DRUG SUBSTITUTION [None]
